FAERS Safety Report 11524714 (Version 1)
Quarter: 2015Q3

REPORT INFORMATION
  Report Type: Spontaneous
  Country: JP (occurrence: JP)
  Receive Date: 20150918
  Receipt Date: 20150918
  Transmission Date: 20151125
  Serious: Yes (Hospitalization)
  Sender: FDA-Public Use
  Company Number: JP-EISAI MEDICAL RESEARCH-EC-2015-010544

PATIENT
  Age: 49 Year
  Sex: Female

DRUGS (2)
  1. HALAVEN [Suspect]
     Active Substance: ERIBULIN MESYLATE
     Indication: BREAST CANCER RECURRENT
     Route: 041
     Dates: start: 20150826, end: 20150826
  2. HALAVEN [Suspect]
     Active Substance: ERIBULIN MESYLATE
     Dosage: (60% OF THE PREVIOUS DOSE)
     Route: 041
     Dates: start: 20150916

REACTIONS (2)
  - Febrile neutropenia [Recovered/Resolved]
  - Alopecia [Unknown]

NARRATIVE: CASE EVENT DATE: 20150902
